FAERS Safety Report 5911316-1 (Version None)
Quarter: 2008Q4

REPORT INFORMATION
  Report Type: 
  Country: None (occurrence: None)
  Receive Date: 20081007
  Receipt Date: 20080930
  Transmission Date: 20090506
  Serious: No
  Sender: FDA-Public Use
  Company Number: US-B.I. PHARMACEUTICALS,INC./RIDGEFIELD-2008-BP-15228BP

PATIENT
  Age: 85 Year
  Sex: Female

DRUGS (9)
  1. SPIRIVA [Suspect]
     Indication: DYSPNOEA
     Dosage: 18MCG
     Route: 055
     Dates: start: 20080601
  2. SPIRIVA [Suspect]
     Indication: EMPHYSEMA
  3. COZAAR [Concomitant]
     Indication: HYPERTENSION
  4. NORVASC [Concomitant]
     Indication: HYPERTENSION
  5. METOPROLOL TARTRATE [Concomitant]
     Indication: HYPERTENSION
  6. COUMADIN [Concomitant]
     Indication: THROMBOSIS PROPHYLAXIS
  7. POTASSIUM CHLORIDE [Concomitant]
  8. FOLIC ACID [Concomitant]
  9. TRIAMTERENE AND HYDROCHLOROTHIAZIDE [Concomitant]
     Indication: HYPERTENSION

REACTIONS (5)
  - DYSPHONIA [None]
  - GINGIVAL DISORDER [None]
  - LIP DISORDER [None]
  - ORAL DISCOMFORT [None]
  - PARAESTHESIA ORAL [None]
